FAERS Safety Report 4683668-4 (Version None)
Quarter: 2005Q2

REPORT INFORMATION
  Report Type: 
  Country: None (occurrence: None)
  Receive Date: 20050607
  Receipt Date: 20041005
  Transmission Date: 20051028
  Serious: Yes (Hospitalization, Other)
  Sender: FDA-Public Use
  Company Number: 200511247JP

PATIENT
  Age: 70 Year
  Sex: Female
  Weight: 44 kg

DRUGS (5)
  1. ARAVA [Suspect]
     Indication: RHEUMATOID ARTHRITIS
     Route: 048
     Dates: start: 20040511, end: 20040912
  2. ALEVIATIN [Suspect]
     Indication: EPILEPSY
  3. PREDONINE [Concomitant]
     Indication: RHEUMATOID ARTHRITIS
     Route: 048
  4. FLUCAM [Concomitant]
     Indication: RHEUMATOID ARTHRITIS
     Route: 048
  5. AZULFIDINE [Concomitant]
     Indication: RHEUMATOID ARTHRITIS
     Route: 048
     Dates: start: 20050405

REACTIONS (14)
  - ALOPECIA [None]
  - ANTICONVULSANT DRUG LEVEL ABOVE THERAPEUTIC [None]
  - ASTHENIA [None]
  - BLOOD ALKALINE PHOSPHATASE INCREASED [None]
  - BLOOD CHOLESTEROL INCREASED [None]
  - CONVULSION [None]
  - DIFFICULTY IN WALKING [None]
  - DYSGEUSIA [None]
  - HAEMOGLOBIN DECREASED [None]
  - LYMPHOCYTE PERCENTAGE DECREASED [None]
  - PLATELET COUNT DECREASED [None]
  - RASH [None]
  - SWELLING FACE [None]
  - WHITE BLOOD CELL COUNT DECREASED [None]
